FAERS Safety Report 16887718 (Version 1)
Quarter: 2019Q4

REPORT INFORMATION
  Report Type: Spontaneous
  Country: SE (occurrence: SE)
  Receive Date: 20191005
  Receipt Date: 20191005
  Transmission Date: 20200122
  Serious: Yes (Hospitalization, Other)
  Sender: FDA-Public Use
  Company Number: SE-AUROBINDO-AUR-APL-2019-064491

PATIENT
  Age: 76 Year
  Sex: Male
  Weight: 102 kg

DRUGS (7)
  1. VALSARTAN. [Suspect]
     Active Substance: VALSARTAN
     Indication: CARDIAC FAILURE CHRONIC
     Dosage: 320 MILLIGRAM, ONCE A DAY, (160 MG, BID)
     Route: 048
     Dates: start: 20151217
  2. METOPROLOL. [Suspect]
     Active Substance: METOPROLOL
     Indication: HYPERTENSION
     Dosage: 300 MILLIGRAM, ONCE A DAY, (150 MG, BID)
     Route: 048
     Dates: start: 2007, end: 20160316
  3. TROMBYL [Concomitant]
     Active Substance: ASPIRIN
     Indication: CARDIOVASCULAR EVENT PROPHYLAXIS
     Dosage: 75 MILLIGRAM, ONCE A DAY
     Route: 048
     Dates: start: 20110614
  4. FURIX [Concomitant]
     Indication: CARDIAC FAILURE
     Dosage: 160 MILLIGRAM, ONCE A DAY, (80 MG, BID)
     Route: 048
     Dates: start: 20101027
  5. DOXAZOSIN [Concomitant]
     Active Substance: DOXAZOSIN MESYLATE
     Indication: HYPERTENSION
     Dosage: 8 MILLIGRAM, ONCE A DAY
     Route: 048
     Dates: start: 20140530
  6. IMDUR [Concomitant]
     Active Substance: ISOSORBIDE MONONITRATE
     Indication: ANGINA PECTORIS
     Dosage: 60 MILLIGRAM, ONCE A DAY
     Route: 048
     Dates: start: 20110307
  7. AMLODIPINE [Concomitant]
     Active Substance: AMLODIPINE BESYLATE
     Indication: HYPERTENSION
     Dosage: 10 MILLIGRAM, ONCE A DAY
     Route: 048
     Dates: start: 2010

REACTIONS (1)
  - Atrioventricular block complete [Recovered/Resolved]

NARRATIVE: CASE EVENT DATE: 20160316
